FAERS Safety Report 6401640-0 (Version None)
Quarter: 2009Q4

REPORT INFORMATION
  Report Type: 
  Country: None (occurrence: None)
  Receive Date: 20091009
  Receipt Date: 20091009
  Transmission Date: 20100525
  Serious: Yes (Death)
  Sender: FDA-Public Use
  Company Number: None

PATIENT
  Age: 65 Year
  Sex: Male
  Weight: 181.4388 kg

DRUGS (1)
  1. ABILIFY [Suspect]
     Indication: BIPOLAR DISORDER
     Dosage: 5 MG. PO
     Route: 048
     Dates: start: 20090916, end: 20090927

REACTIONS (6)
  - BODY TEMPERATURE INCREASED [None]
  - CONFUSIONAL STATE [None]
  - LOSS OF CONSCIOUSNESS [None]
  - POLYDIPSIA [None]
  - SPEECH DISORDER [None]
  - URINE OUTPUT INCREASED [None]
